FAERS Safety Report 6402582-7 (Version None)
Quarter: 2009Q4

REPORT INFORMATION
  Report Type: 
  Country: None (occurrence: None)
  Receive Date: 20091009
  Receipt Date: 20090930
  Transmission Date: 20100525
  Serious: Yes (Other)
  Sender: FDA-Public Use
  Company Number: ADR34662009

PATIENT
  Age: 52 Year
  Sex: Female

DRUGS (1)
  1. CIPROFLOXACIN [Suspect]
     Indication: DIARRHOEA
     Dosage: 250 MG ORAL
     Route: 048
     Dates: start: 20060711, end: 20060711

REACTIONS (3)
  - ANGIOEDEMA [None]
  - CHEST DISCOMFORT [None]
  - DYSPNOEA [None]
